FAERS Safety Report 24760721 (Version 3)
Quarter: 2025Q3

REPORT INFORMATION
  Report Type: Report from Study
  Country: JP (occurrence: JP)
  Receive Date: 20241220
  Receipt Date: 20250910
  Transmission Date: 20251020
  Serious: Yes (Hospitalization, Other)
  Sender: PFIZER
  Company Number: JP-PFIZER INC-202400328241

PATIENT
  Age: 5 Month
  Sex: Female

DRUGS (10)
  1. SIROLIMUS [Suspect]
     Active Substance: SIROLIMUS
     Indication: Kaposiform haemangioendothelioma
     Route: 048
     Dates: start: 20240227, end: 20240325
  2. SIROLIMUS [Suspect]
     Active Substance: SIROLIMUS
     Route: 048
     Dates: start: 20240326, end: 20240624
  3. SIROLIMUS [Suspect]
     Active Substance: SIROLIMUS
     Route: 048
     Dates: start: 20240625, end: 20240718
  4. SIROLIMUS [Suspect]
     Active Substance: SIROLIMUS
     Route: 048
     Dates: start: 20240831, end: 20241018
  5. SIROLIMUS [Suspect]
     Active Substance: SIROLIMUS
     Route: 048
     Dates: start: 20241019
  6. PREDNISOLONE SODIUM SUCCINATE [Suspect]
     Active Substance: PREDNISOLONE SODIUM SUCCINATE
     Route: 042
     Dates: start: 20240122, end: 20240304
  7. PREDNISOLONE SODIUM SUCCINATE [Suspect]
     Active Substance: PREDNISOLONE SODIUM SUCCINATE
     Route: 048
  8. SULFAMETHOXAZOLE\TRIMETHOPRIM [Suspect]
     Active Substance: SULFAMETHOXAZOLE\TRIMETHOPRIM
     Route: 048
     Dates: start: 20240227
  9. HYDROCORTISONE SODIUM PHOSPHATE [Concomitant]
     Active Substance: HYDROCORTISONE SODIUM PHOSPHATE
     Dates: start: 20240326, end: 20240426
  10. PROPRANOLOL HYDROCHLORIDE [Concomitant]
     Active Substance: PROPRANOLOL HYDROCHLORIDE
     Route: 048
     Dates: start: 20240105, end: 20240304

REACTIONS (3)
  - Citrobacter bacteraemia [Recovered/Resolved]
  - Wound dehiscence [Recovered/Resolved]
  - Faeces soft [Recovered/Resolved]

NARRATIVE: CASE EVENT DATE: 20240314
